FAERS Safety Report 23998833 (Version 1)
Quarter: 2024Q2

REPORT INFORMATION
  Report Type: Spontaneous
  Country: US (occurrence: None)
  Receive Date: 20240620
  Receipt Date: 20240620
  Transmission Date: 20240716
  Serious: Yes (Disabling)
  Sender: FDA-Public Use
  Company Number: None

PATIENT
  Age: 79 Year
  Sex: Female
  Weight: 58.06 kg

DRUGS (1)
  1. EYLEA HD [Suspect]
     Active Substance: AFLIBERCEPT

REACTIONS (3)
  - Endophthalmitis [None]
  - Eye excision [None]
  - Eye pain [None]

NARRATIVE: CASE EVENT DATE: 20231130
